FAERS Safety Report 11354146 (Version 1)
Quarter: 2015Q3

REPORT INFORMATION
  Report Type: Spontaneous
  Country: US (occurrence: US)
  Receive Date: 20150807
  Receipt Date: 20150807
  Transmission Date: 20151125
  Serious: No
  Sender: FDA-Public Use
  Company Number: US-JNJFOC-20150616042

PATIENT
  Sex: Male
  Weight: 79.38 kg

DRUGS (1)
  1. SUDAFED CONGESTION MS [Suspect]
     Active Substance: PSEUDOEPHEDRINE HYDROCHLORIDE
     Indication: RHINORRHOEA
     Route: 048

REACTIONS (5)
  - Therapeutic response unexpected [Unknown]
  - Headache [Unknown]
  - Blood pressure increased [Unknown]
  - Vasoconstriction [Unknown]
  - Off label use [Unknown]
